FAERS Safety Report 12745375 (Version 1)
Quarter: 2016Q3

REPORT INFORMATION
  Report Type: Spontaneous
  Country: US (occurrence: US)
  Receive Date: 20160914
  Receipt Date: 20160914
  Transmission Date: 20161109
  Serious: Yes (Hospitalization)
  Sender: FDA-Public Use
  Company Number: None

PATIENT
  Age: 67 Year
  Sex: Male

DRUGS (2)
  1. LIDOCAINE. [Suspect]
     Active Substance: LIDOCAINE
     Indication: OSTEOARTHRITIS
     Dosage: OTHER STRENGTH:;OTHER DOSE:;OTHER FREQUENCY:ONCE;OTHER ROUTE:
     Route: 014
     Dates: start: 20160829
  2. BUPIVACAINE. [Suspect]
     Active Substance: BUPIVACAINE
     Indication: OSTEOARTHRITIS
     Dosage: OTHER STRENGTH:;OTHER DOSE:;OTHER FREQUENCY:ONCE;OTHER ROUTE:
     Route: 014
     Dates: start: 20160829

REACTIONS (4)
  - Staphylococcus test positive [None]
  - Joint swelling [None]
  - Arthralgia [None]
  - Product quality issue [None]

NARRATIVE: CASE EVENT DATE: 20160829
